FAERS Safety Report 16299483 (Version 1)
Quarter: 2019Q2

REPORT INFORMATION
  Report Type: Spontaneous
  Country: US (occurrence: US)
  Receive Date: 20190510
  Receipt Date: 20190510
  Transmission Date: 20190711
  Serious: Yes (Hospitalization)
  Sender: FDA-Public Use
  Company Number: US-ELI_LILLY_AND_COMPANY-US201905000512

PATIENT
  Sex: Female

DRUGS (1)
  1. TRULICITY [Suspect]
     Active Substance: DULAGLUTIDE
     Indication: WEIGHT DECREASED
     Dosage: 0.75 MG, UNKNOWN
     Route: 058
     Dates: start: 20190421, end: 20190425

REACTIONS (13)
  - Constipation [Unknown]
  - Decreased appetite [Recovering/Resolving]
  - Off label use [Recovered/Resolved]
  - Asthenia [Recovering/Resolving]
  - Abdominal distension [Unknown]
  - Eructation [Unknown]
  - Flatulence [Unknown]
  - Gastrooesophageal reflux disease [Unknown]
  - Abdominal pain [Recovered/Resolved]
  - Dehydration [Unknown]
  - Nausea [Recovering/Resolving]
  - Movement disorder [Unknown]
  - Fatigue [Recovering/Resolving]

NARRATIVE: CASE EVENT DATE: 20190421
